FAERS Safety Report 20195207 (Version 3)
Quarter: 2022Q1

REPORT INFORMATION
  Report Type: Report from Study
  Country: US (occurrence: US)
  Receive Date: 20211216
  Receipt Date: 20220315
  Transmission Date: 20220424
  Serious: No
  Sender: FDA-Public Use
  Company Number: US-BIOVITRUM-2021US11901

PATIENT
  Age: 3 Year
  Sex: Female

DRUGS (2)
  1. KINERET [Suspect]
     Active Substance: ANAKINRA
     Indication: Still^s disease
     Route: 058
     Dates: start: 20211118
  2. KINERET [Suspect]
     Active Substance: ANAKINRA
     Route: 058
     Dates: start: 202111

REACTIONS (11)
  - Eczema [Recovering/Resolving]
  - Cough [Unknown]
  - Asthenia [Unknown]
  - Mouth injury [Unknown]
  - Tooth injury [Unknown]
  - Fall [Unknown]
  - Injection site rash [Unknown]
  - Rash [Unknown]
  - Product dose omission issue [Unknown]
  - Off label use [Unknown]
  - Needle issue [Unknown]

NARRATIVE: CASE EVENT DATE: 20211118
